APPROVED DRUG PRODUCT: RANITIDINE HYDROCHLORIDE
Active Ingredient: RANITIDINE HYDROCHLORIDE
Strength: EQ 150MG BASE
Dosage Form/Route: TABLET;ORAL
Application: A210228 | Product #001
Applicant: THINQ PHARMA-CRO PRIVATE LTD
Approved: Aug 30, 2019 | RLD: No | RS: No | Type: DISCN